FAERS Safety Report 16843637 (Version 1)
Quarter: 2019Q3

REPORT INFORMATION
  Report Type: Spontaneous
  Country: NL (occurrence: NL)
  Receive Date: 20190924
  Receipt Date: 20190924
  Transmission Date: 20191005
  Serious: Yes (Hospitalization, Other)
  Sender: FDA-Public Use
  Company Number: NL-ALVOGEN-2019-ALVOGEN-101466

PATIENT
  Age: 52 Year
  Sex: Male
  Weight: 81 kg

DRUGS (1)
  1. ATENOLOL/CHLORTALIDONE [Suspect]
     Active Substance: ATENOLOL\CHLORTHALIDONE
     Indication: HYPERTENSION
     Dosage: 1 DAILY 12,5MG
     Route: 048
     Dates: start: 20120202

REACTIONS (3)
  - Skin cancer [Not Recovered/Not Resolved]
  - Sexual dysfunction [Not Recovered/Not Resolved]
  - Alopecia [Not Recovered/Not Resolved]

NARRATIVE: CASE EVENT DATE: 20120701
